FAERS Safety Report 8454666-X (Version None)
Quarter: 2012Q2

REPORT INFORMATION
  Report Type: 
  Country: None (occurrence: None)
  Receive Date: 20120615
  Receipt Date: 20120615
  Transmission Date: 20120825
  Serious: Yes (Other)
  Sender: FDA-Public Use
  Company Number: None

PATIENT
  Age: 34 Year
  Sex: Female
  Weight: 58.0604 kg

DRUGS (2)
  1. TRAMADOL HCL [Suspect]
     Indication: INTERVERTEBRAL DISC PROTRUSION
     Dosage: 1 TABLET 4 TIMES DAILY BUCCAL ON AND OFF 1 MONTH
     Route: 002
     Dates: start: 20120614, end: 20120614
  2. TRAMADOL HCL [Suspect]
     Indication: INTERVERTEBRAL DISC PROTRUSION
     Dosage: 1 TABLET 4 TIMES DAILY BUCCAL ON AND OFF 1 MONTH
     Route: 002
     Dates: start: 20110224, end: 20110309

REACTIONS (5)
  - INSOMNIA [None]
  - NAUSEA [None]
  - DIZZINESS [None]
  - HYPOAESTHESIA [None]
  - TINNITUS [None]
